FAERS Safety Report 5013652-2 (Version None)
Quarter: 2006Q2

REPORT INFORMATION
  Report Type: 
  Country: None (occurrence: None)
  Receive Date: 20060530
  Receipt Date: 20060524
  Transmission Date: 20061013
  Serious: Yes (Hospitalization)
  Sender: FDA-Public Use
  Company Number: FR-GLAXOSMITHKLINE-B0425035A

PATIENT
  Age: 79 Year
  Sex: Male

DRUGS (5)
  1. AUGMENTIN '125' [Suspect]
     Indication: LUNG DISORDER
     Dosage: 3G PER DAY
     Route: 048
     Dates: start: 20060502, end: 20060508
  2. TOPLEXIL [Suspect]
     Dosage: 1UNIT CUMULATIVE DOSE
     Route: 048
     Dates: start: 20060507, end: 20060507
  3. OFLOCET [Suspect]
     Dosage: 400MG PER DAY
     Route: 048
     Dates: start: 20060505, end: 20060508
  4. LOVENOX [Suspect]
     Dosage: .7ML TWICE PER DAY
     Route: 058
     Dates: start: 20060502, end: 20060508
  5. SINTROM [Concomitant]
     Route: 048

REACTIONS (2)
  - LARYNGEAL OEDEMA [None]
  - URTICARIA [None]
